FAERS Safety Report 4984876-5 (Version None)
Quarter: 2006Q2

REPORT INFORMATION
  Report Type: 
  Country: None (occurrence: None)
  Receive Date: 20060427
  Receipt Date: 20060420
  Transmission Date: 20061013
  Serious: Yes (Death, Hospitalization)
  Sender: FDA-Public Use
  Company Number: HU-ROCHE-445185

PATIENT
  Age: 62 Year
  Sex: Female

DRUGS (1)
  1. XELODA [Suspect]
     Route: 048
     Dates: start: 20060330, end: 20060410

REACTIONS (6)
  - AGRANULOCYTOSIS [None]
  - CIRCULATORY COLLAPSE [None]
  - DIARRHOEA [None]
  - PYREXIA [None]
  - THERAPY NON-RESPONDER [None]
  - URTICARIA [None]
